FAERS Safety Report 8196059-9 (Version None)
Quarter: 2012Q1

REPORT INFORMATION
  Report Type: 
  Country: None (occurrence: None)
  Receive Date: 20120309
  Receipt Date: 20120302
  Transmission Date: 20120608
  Serious: No
  Sender: FDA-Public Use
  Company Number: US-BIOGENIDEC-2012BI008104

PATIENT
  Sex: Female

DRUGS (1)
  1. TYSABRI [Suspect]
     Indication: MULTIPLE SCLEROSIS
     Route: 042
     Dates: start: 20100115

REACTIONS (6)
  - GASTRIC DISORDER [None]
  - PYREXIA [None]
  - COLITIS [None]
  - GASTROINTESTINAL DISORDER [None]
  - MIGRAINE [None]
  - CYSTITIS [None]
